FAERS Safety Report 4899580-1 (Version None)
Quarter: 2006Q1

REPORT INFORMATION
  Report Type: 
  Country: None (occurrence: None)
  Receive Date: 20060130
  Receipt Date: 20060113
  Transmission Date: 20060701
  Serious: Yes (Other)
  Sender: FDA-Public Use
  Company Number: 2006-BP-00407RO

PATIENT
  Age: 36 Year
  Sex: Male

DRUGS (2)
  1. LITHIUM CARBONATE [Suspect]
     Indication: BIPOLAR DISORDER
  2. THIOPENTAL SODIUM [Concomitant]

REACTIONS (5)
  - COMPLEX PARTIAL SEIZURES [None]
  - CONVULSION [None]
  - DRUG LEVEL BELOW THERAPEUTIC [None]
  - ELECTROENCEPHALOGRAM ABNORMAL [None]
  - MAJOR DEPRESSION [None]
